FAERS Safety Report 14261835 (Version 4)
Quarter: 2018Q1

REPORT INFORMATION
  Report Type: Report from Study
  Country: None (occurrence: CO)
  Receive Date: 20171208
  Receipt Date: 20180209
  Transmission Date: 20180508
  Serious: Yes (Other)
  Sender: FDA-Public Use
  Company Number: CO-ABBVIE-17K-036-2185563-00

PATIENT
  Age: 53 Year
  Sex: Male
  Weight: 89 kg

DRUGS (1)
  1. HUMIRA [Suspect]
     Active Substance: ADALIMUMAB
     Indication: PSORIATIC ARTHROPATHY
     Route: 058
     Dates: start: 20120530, end: 20170718

REACTIONS (6)
  - Brain neoplasm benign [Recovering/Resolving]
  - Ear pain [Unknown]
  - Eye pain [Recovering/Resolving]
  - Asterixis [Unknown]
  - Nausea [Recovering/Resolving]
  - Gingival pain [Unknown]

NARRATIVE: CASE EVENT DATE: 201711
